FAERS Safety Report 4541013-9 (Version None)
Quarter: 2004Q4

REPORT INFORMATION
  Report Type: 
  Country: None (occurrence: None)
  Receive Date: 20041228
  Receipt Date: 20041217
  Transmission Date: 20050328
  Serious: Yes (Other)
  Sender: FDA-Public Use
  Company Number: CEL-2004-02187-SLO

PATIENT
  Age: 5 Year
  Sex: Male

DRUGS (1)
  1. METHYLPHYENIDATE HCL [Suspect]
     Indication: ATTENTION DEFICIT/HYPERACTIVITY DISORDER
     Dosage: 25MG, TWICE DAILY, ROUTE UNKNOWN
     Dates: start: 20041116

REACTIONS (1)
  - NEUTROPENIA [None]
